FAERS Safety Report 9347125 (Version 1)
Quarter: 2013Q2

REPORT INFORMATION
  Report Type: Spontaneous
  Country: US (occurrence: US)
  Receive Date: 20130613
  Receipt Date: 20130613
  Transmission Date: 20140414
  Serious: No
  Sender: FDA-Public Use
  Company Number: US-009507513-1305USA012325

PATIENT
  Age: 51 Year
  Sex: Female
  Weight: 65.31 kg

DRUGS (2)
  1. AFRIN [Suspect]
     Indication: NASAL CONGESTION
     Dosage: 3-4 TIMES, QD
     Route: 045
     Dates: start: 2011
  2. AFRIN [Suspect]
     Dosage: 3-4 TIMES, QD
     Route: 045
     Dates: start: 2011

REACTIONS (5)
  - Dyspnoea [Not Recovered/Not Resolved]
  - Dysphonia [Not Recovered/Not Resolved]
  - Cough [Not Recovered/Not Resolved]
  - Overdose [Unknown]
  - Liquid product physical issue [Unknown]
